FAERS Safety Report 24897496 (Version 5)
Quarter: 2025Q3

REPORT INFORMATION
  Report Type: Spontaneous
  Country: US (occurrence: US)
  Receive Date: 20250129
  Receipt Date: 20250809
  Transmission Date: 20251021
  Serious: Yes (Other)
  Sender: ALEXION PHARMACEUTICALS
  Company Number: US-AstraZeneca-CH-00792306AP

PATIENT
  Sex: Female

DRUGS (4)
  1. TEZSPIRE [Suspect]
     Active Substance: TEZEPELUMAB-EKKO
     Route: 065
  2. TEZSPIRE [Suspect]
     Active Substance: TEZEPELUMAB-EKKO
     Route: 065
  3. DOXYCYCLINE [Concomitant]
     Active Substance: DOXYCYCLINE
     Route: 065
  4. NUCALA [Concomitant]
     Active Substance: MEPOLIZUMAB
     Route: 065

REACTIONS (11)
  - Pneumonia [Unknown]
  - Feeling abnormal [Unknown]
  - Respiratory syncytial virus infection [Unknown]
  - Arthropathy [Unknown]
  - Nausea [Unknown]
  - Illness [Unknown]
  - Limb injury [Unknown]
  - Spinal column injury [Unknown]
  - Back injury [Unknown]
  - Hypokinesia [Unknown]
  - Inflammation [Unknown]
